FAERS Safety Report 17330517 (Version 1)
Quarter: 2020Q1

REPORT INFORMATION
  Report Type: Spontaneous
  Country: US (occurrence: US)
  Receive Date: 20200127
  Receipt Date: 20200127
  Transmission Date: 20200409
  Serious: No
  Sender: FDA-Public Use
  Company Number: US-GALDERMA-US19057047

PATIENT
  Age: 25 Year
  Sex: Female

DRUGS (4)
  1. DESONIDE (DESONIDE) 0.05% [Suspect]
     Active Substance: DESONIDE
     Indication: SKIN PLAQUE
  2. DESOXIMETASONE. [Concomitant]
     Active Substance: DESOXIMETASONE
     Indication: ECZEMA
     Route: 061
  3. DESOXIMETASONE. [Concomitant]
     Active Substance: DESOXIMETASONE
     Indication: SKIN PLAQUE
  4. DESONIDE (DESONIDE) 0.05% [Suspect]
     Active Substance: DESONIDE
     Indication: ECZEMA
     Dosage: 0.05%
     Route: 061

REACTIONS (2)
  - Drug ineffective [Unknown]
  - Intentional product use issue [Recovered/Resolved]
